FAERS Safety Report 7469612-5 (Version None)
Quarter: 2011Q2

REPORT INFORMATION
  Report Type: 
  Country: None (occurrence: None)
  Receive Date: 20110510
  Receipt Date: 20110421
  Transmission Date: 20111010
  Serious: No
  Sender: FDA-Public Use
  Company Number: US-B.I. PHARMACEUTICALS,INC./RIDGEFIELD-2011-BP-05363BP

PATIENT
  Age: 71 Year
  Sex: Female

DRUGS (19)
  1. POTASSIUM [Concomitant]
     Indication: SUPPLEMENTATION THERAPY
     Dosage: 10 MEQ
  2. DESYREL [Concomitant]
     Indication: SLEEP DISORDER
  3. LORTAB [Concomitant]
     Indication: PAIN
     Dosage: 7.5 MG
  4. TRAZODONE HCL [Concomitant]
     Indication: SLEEP DISORDER
  5. DULERA TABLET [Concomitant]
     Indication: CHRONIC OBSTRUCTIVE PULMONARY DISEASE
  6. MAXZIDE [Concomitant]
  7. PRADAXA [Suspect]
     Indication: CEREBROVASCULAR ACCIDENT
  8. PREDNISONE [Concomitant]
     Indication: CHRONIC OBSTRUCTIVE PULMONARY DISEASE
     Dosage: 5 MG
  9. CLONAZEPAM [Concomitant]
  10. OXYGEN [Concomitant]
     Indication: CHRONIC OBSTRUCTIVE PULMONARY DISEASE
  11. CALCIUM [Concomitant]
     Indication: SUPPLEMENTATION THERAPY
  12. CARDIZEM [Concomitant]
     Indication: CARDIAC DISORDER
  13. CELEXA [Concomitant]
     Indication: ANTIDEPRESSANT THERAPY
  14. CLARITIN [Concomitant]
     Indication: HYPERSENSITIVITY
  15. PRADAXA [Suspect]
     Indication: ATRIAL FIBRILLATION
     Dosage: 150 MG
     Route: 048
     Dates: start: 20110101
  16. ALBUTEROL SULFATE AND IPRATROPIUM BROMIDE [Concomitant]
     Indication: CHRONIC OBSTRUCTIVE PULMONARY DISEASE
  17. ZANTAC [Concomitant]
     Indication: DYSPEPSIA
  18. FLUCONAZOLE [Concomitant]
     Indication: FUNGAL INFECTION
     Dosage: 100 MG
  19. OXYGEN [Concomitant]
     Indication: EMPHYSEMA

REACTIONS (1)
  - FATIGUE [None]
